FAERS Safety Report 7658544-5 (Version None)
Quarter: 2011Q3

REPORT INFORMATION
  Report Type: 
  Country: None (occurrence: None)
  Receive Date: 20110802
  Receipt Date: 20110725
  Transmission Date: 20111222
  Serious: Yes (Congenital Anomaly)
  Sender: FDA-Public Use
  Company Number: 1000022436

PATIENT
  Sex: Female

DRUGS (1)
  1. CELEXA [Suspect]
     Dosage: TRANSPLACENTAL

REACTIONS (3)
  - MATERNAL DRUGS AFFECTING FOETUS [None]
  - HEART DISEASE CONGENITAL [None]
  - EXOMPHALOS [None]
